FAERS Safety Report 18751412 (Version 4)
Quarter: 2023Q4

REPORT INFORMATION
  Report Type: Report from Study
  Country: US (occurrence: US)
  Receive Date: 20210118
  Receipt Date: 20231206
  Transmission Date: 20240110
  Serious: Yes (Other)
  Sender: FDA-Public Use
  Company Number: US-TAKEDA-2021TUS002758

PATIENT
  Age: 60 Year
  Sex: Male
  Weight: 100 kg

DRUGS (26)
  1. HUMAN IMMUNOGLOBULIN G [Suspect]
     Active Substance: HUMAN IMMUNOGLOBULIN G
     Indication: Chronic hepatitis C
     Dosage: 40 GRAM, 1/WEEK
     Route: 058
     Dates: start: 20210108
  2. HUMAN IMMUNOGLOBULIN G [Suspect]
     Active Substance: HUMAN IMMUNOGLOBULIN G
     Indication: Myasthenia gravis
  3. DIPHENHYDRAMINE [Concomitant]
     Active Substance: DIPHENHYDRAMINE
     Route: 065
  4. KETOCONAZOLE [Concomitant]
     Active Substance: KETOCONAZOLE
     Route: 065
  5. EPINEPHRINE [Concomitant]
     Active Substance: EPINEPHRINE
     Route: 065
  6. CLOBETASOL PROPIONATE [Concomitant]
     Active Substance: CLOBETASOL PROPIONATE
  7. BACTRIM [Concomitant]
     Active Substance: SULFAMETHOXAZOLE\TRIMETHOPRIM
     Route: 065
  8. IBUPROFEN [Concomitant]
     Active Substance: IBUPROFEN
     Route: 065
  9. CALCIUM CARBONATE\CHOLECALCIFEROL [Concomitant]
     Active Substance: CALCIUM CARBONATE\CHOLECALCIFEROL
     Route: 065
  10. AZELASTINE HYDROCHLORIDE [Concomitant]
     Active Substance: AZELASTINE HYDROCHLORIDE
     Route: 065
  11. PYRIDOSTIGMINE BROMIDE [Concomitant]
     Active Substance: PYRIDOSTIGMINE BROMIDE
     Route: 065
  12. ERTAPENEM [Concomitant]
     Active Substance: ERTAPENEM
     Route: 065
  13. CYANOCOBALAMIN\FOLIC ACID\PYRIDOXINE [Concomitant]
     Active Substance: CYANOCOBALAMIN\FOLIC ACID\PYRIDOXINE
     Route: 065
  14. OMEPRAZOLE [Concomitant]
     Active Substance: OMEPRAZOLE
     Route: 065
  15. FIBER LAX [Concomitant]
     Active Substance: CALCIUM POLYCARBOPHIL
     Route: 065
  16. LIDOCAINE [Concomitant]
     Active Substance: LIDOCAINE
     Route: 065
  17. DILTIAZEM [Concomitant]
     Active Substance: DILTIAZEM
     Route: 065
  18. VITAMIN B [Concomitant]
     Active Substance: VITAMIN B
     Route: 065
  19. PREDNISONE [Concomitant]
     Active Substance: PREDNISONE
     Route: 065
  20. METFORMIN HYDROCHLORIDE [Concomitant]
     Active Substance: METFORMIN HYDROCHLORIDE
     Route: 065
  21. VITAMIN D2 [Concomitant]
     Active Substance: ERGOCALCIFEROL
     Route: 065
  22. VITAMIN B12 [Concomitant]
     Active Substance: CYANOCOBALAMIN
     Route: 065
  23. ACETAMINOPHEN [Concomitant]
     Active Substance: ACETAMINOPHEN
     Route: 065
  24. Lmx [Concomitant]
     Route: 065
  25. VITAMIN D [Concomitant]
     Active Substance: VITAMIN D NOS
     Route: 065
  26. FIBER LAXATIVE [Concomitant]
     Route: 065

REACTIONS (13)
  - Medical device implantation [Unknown]
  - Aspiration bone marrow [Unknown]
  - Localised infection [Unknown]
  - Infection [Unknown]
  - Ear infection [Unknown]
  - Nasopharyngitis [Unknown]
  - Eczema [Unknown]
  - Product distribution issue [Unknown]
  - Sinusitis [Unknown]
  - Infusion site discolouration [Unknown]
  - Infusion site haemorrhage [Unknown]
  - Off label use [Unknown]
  - Poor quality product administered [Unknown]

NARRATIVE: CASE EVENT DATE: 20210108
